FAERS Safety Report 6066573-0 (Version None)
Quarter: 2009Q1

REPORT INFORMATION
  Report Type: 
  Country: None (occurrence: None)
  Receive Date: 20090205
  Receipt Date: 20090129
  Transmission Date: 20090719
  Serious: Yes (Disabling)
  Sender: FDA-Public Use
  Company Number: A0765692A

PATIENT
  Sex: Female

DRUGS (7)
  1. REQUIP [Suspect]
     Indication: RESTLESS LEGS SYNDROME
     Route: 048
     Dates: start: 20080101, end: 20081101
  2. REQUIP XL [Suspect]
     Indication: RESTLESS LEGS SYNDROME
     Route: 048
  3. ROPINIROLE [Suspect]
     Indication: RESTLESS LEGS SYNDROME
     Route: 048
  4. ADVAIR DISKUS 100/50 [Concomitant]
  5. PROZAC [Concomitant]
  6. PERCOCET [Concomitant]
  7. FENTANYL-75 [Concomitant]

REACTIONS (6)
  - DIZZINESS [None]
  - DRUG INTOLERANCE [None]
  - FALL [None]
  - FEELING ABNORMAL [None]
  - SUDDEN ONSET OF SLEEP [None]
  - SWELLING [None]
